FAERS Safety Report 8529796-4 (Version None)
Quarter: 2012Q3

REPORT INFORMATION
  Report Type: 
  Country: None (occurrence: None)
  Receive Date: 20120710
  Receipt Date: 20120626
  Transmission Date: 20120928
  Serious: Yes (Hospitalization, Disabling, Other)
  Sender: FDA-Public Use
  Company Number: 2012P1046349

PATIENT
  Age: 21 Year
  Sex: Male

DRUGS (2)
  1. METHAQUALONE TAB [Concomitant]
  2. PHENYTOIN [Suspect]
     Indication: EPILEPSY
     Dosage: 300 MG;QD;PO
     Route: 048

REACTIONS (16)
  - COORDINATION ABNORMAL [None]
  - VISION BLURRED [None]
  - VOMITING [None]
  - HYPOTONIA [None]
  - INTENTION TREMOR [None]
  - HEADACHE [None]
  - TOXICITY TO VARIOUS AGENTS [None]
  - GRAND MAL CONVULSION [None]
  - CEREBELLAR ATROPHY [None]
  - TREATMENT NONCOMPLIANCE [None]
  - GAIT DISTURBANCE [None]
  - NYSTAGMUS [None]
  - SPEECH DISORDER [None]
  - ATAXIA [None]
  - PYREXIA [None]
  - ANTICONVULSANT DRUG LEVEL INCREASED [None]
